FAERS Safety Report 11138468 (Version 1)
Quarter: 2015Q2

REPORT INFORMATION
  Report Type: Spontaneous
  Country: BR (occurrence: BR)
  Receive Date: 20150527
  Receipt Date: 20150527
  Transmission Date: 20150821
  Serious: Yes (Hospitalization, Other)
  Sender: FDA-Public Use
  Company Number: BR-AMGEN-BRASP2015050646

PATIENT
  Sex: Male

DRUGS (3)
  1. ALLOPURINOL. [Concomitant]
     Active Substance: ALLOPURINOL
     Dosage: 100 MG, 2 IN 1 D
     Dates: start: 2005
  2. GRANULOKINE [Suspect]
     Active Substance: FILGRASTIM
     Indication: GLYCOGEN STORAGE DISEASE TYPE I
     Dosage: 300 MG, 1 VIAL OF 1 ML ON ALTERNATE DAYS (1 IN 2 D)
     Route: 065
     Dates: start: 1997
  3. PROTOVIT                           /07668801/ [Concomitant]
     Dosage: 20 DROPS, TWICE A DAY (2 IN 1 D)

REACTIONS (7)
  - Immunodeficiency [Unknown]
  - Erysipelas [Unknown]
  - Wound [Unknown]
  - Drug dose omission [Unknown]
  - Pneumonia [Unknown]
  - Neutropenia [Unknown]
  - Skin infection [Unknown]
